FAERS Safety Report 23718830 (Version 1)
Quarter: 2024Q2

REPORT INFORMATION
  Report Type: Spontaneous
  Country: US (occurrence: None)
  Receive Date: 20240407
  Receipt Date: 20240407
  Transmission Date: 20240716
  Serious: No
  Sender: FDA-Public Use
  Company Number: None

PATIENT
  Age: 51 Year
  Sex: Female
  Weight: 72.9 kg

DRUGS (5)
  1. ROSUVASTATIN [Suspect]
     Active Substance: ROSUVASTATIN
     Indication: Product used for unknown indication
     Dosage: 1 TABLET DAILY ORAL
     Route: 048
     Dates: start: 20230912, end: 20240314
  2. ZETIA [Suspect]
     Active Substance: EZETIMIBE
     Indication: Product used for unknown indication
     Dosage: OTHER QUANTITY : 1 TABLETS;?FREQUENCY : DAILY;?
     Route: 048
     Dates: start: 20230912, end: 20240314
  3. NAPRAXEN [Concomitant]
  4. B12 [Concomitant]
  5. TYLENOL [Concomitant]
     Active Substance: ACETAMINOPHEN

REACTIONS (4)
  - Small fibre neuropathy [None]
  - Withdrawal syndrome [None]
  - Depression [None]
  - Anger [None]

NARRATIVE: CASE EVENT DATE: 20240207
